FAERS Safety Report 9830209 (Version 1)
Quarter: 2014Q1

REPORT INFORMATION
  Report Type: Report from Study
  Country: US (occurrence: US)
  Receive Date: 20140120
  Receipt Date: 20140120
  Transmission Date: 20141002
  Serious: Yes (Hospitalization)
  Sender: FDA-Public Use
  Company Number: US-ACTELION-A-US2014-93571

PATIENT
  Age: 84 Year
  Sex: Female

DRUGS (2)
  1. TRACLEER [Suspect]
     Indication: PULMONARY ARTERIAL HYPERTENSION
     Dosage: UNK
     Route: 048
  2. SILDENAFIL [Concomitant]
     Dosage: UNK

REACTIONS (4)
  - Large intestinal ulcer [Unknown]
  - Rectal haemorrhage [Unknown]
  - Asthma [Unknown]
  - Night sweats [Unknown]
